FAERS Safety Report 23795871 (Version 1)
Quarter: 2024Q2

REPORT INFORMATION
  Report Type: Spontaneous
  Country: JP (occurrence: JP)
  Receive Date: 20240429
  Receipt Date: 20240429
  Transmission Date: 20240716
  Serious: No
  Sender: FDA-Public Use
  Company Number: JP-WT-2023-15396

PATIENT
  Age: 33 Year
  Sex: Male

DRUGS (2)
  1. LUNESTA [Suspect]
     Active Substance: ESZOPICLONE
     Dosage: 2 MG, QD
     Route: 048
  2. LUNESTA [Suspect]
     Active Substance: ESZOPICLONE
     Dosage: 2MG, QD
     Route: 048

REACTIONS (1)
  - Dysgeusia [Unknown]
